FAERS Safety Report 6733994-X (Version None)
Quarter: 2010Q2

REPORT INFORMATION
  Report Type: 
  Country: None (occurrence: None)
  Receive Date: 20100518
  Receipt Date: 20100506
  Transmission Date: 20101027
  Serious: Yes (Other)
  Sender: FDA-Public Use
  Company Number: 7004080

PATIENT
  Age: 73 Year
  Sex: Female

DRUGS (4)
  1. REBIF [Suspect]
     Indication: MULTIPLE SCLEROSIS
     Dosage: 44 MCG, 3 IN 1 WK, SUBCUTANEOUS
     Route: 058
     Dates: start: 20090903, end: 20100405
  2. IMMUNE GLOBULIN (HUMAN) [Concomitant]
  3. TYLENOL (PARACETAMOL) [Concomitant]
  4. ADVIL LIQUI-GELS [Concomitant]

REACTIONS (9)
  - ANAEMIA [None]
  - BALANCE DISORDER [None]
  - FALL [None]
  - HYDROCEPHALUS [None]
  - HYPERTENSION [None]
  - LIVER FUNCTION TEST ABNORMAL [None]
  - MALAISE [None]
  - NAUSEA [None]
  - URINARY TRACT INFECTION [None]
